FAERS Safety Report 25155309 (Version 1)
Quarter: 2025Q2

REPORT INFORMATION
  Report Type: Report from Study
  Country: ZA (occurrence: ZA)
  Receive Date: 20250403
  Receipt Date: 20250403
  Transmission Date: 20250717
  Serious: Yes (Hospitalization, Other)
  Sender: ALEXION PHARMACEUTICALS
  Company Number: ZA-AstraZeneca-CH-00836922A

PATIENT
  Age: 77 Year

DRUGS (4)
  1. BUDESONIDE\FORMOTEROL [Suspect]
     Active Substance: BUDESONIDE\FORMOTEROL
     Indication: Asthma
  2. OXAZEPAM [Concomitant]
     Active Substance: OXAZEPAM
     Indication: Anxiety
  3. DILTIAZEM HYDROCHLORIDE [Concomitant]
     Active Substance: DILTIAZEM HYDROCHLORIDE
     Indication: Cardiac disorder
  4. FLUOXETINE HYDROCHLORIDE [Concomitant]
     Active Substance: FLUOXETINE HYDROCHLORIDE
     Indication: Depression

REACTIONS (4)
  - Fall [Unknown]
  - Dyspnoea [Unknown]
  - Spinal fracture [Unknown]
  - Rib fracture [Unknown]
